FAERS Safety Report 16651151 (Version 1)
Quarter: 2019Q3

REPORT INFORMATION
  Report Type: Spontaneous
  Country: US (occurrence: US)
  Receive Date: 20190731
  Receipt Date: 20190731
  Transmission Date: 20191004
  Serious: Yes (Hospitalization)
  Sender: FDA-Public Use
  Company Number: US-MYLANLABS-2019M1071527

PATIENT
  Age: 53 Year
  Sex: Female

DRUGS (1)
  1. CLOZAPINE. [Suspect]
     Active Substance: CLOZAPINE
     Indication: SCHIZOPHRENIA
     Route: 065

REACTIONS (5)
  - Catatonia [Recovering/Resolving]
  - Urinary incontinence [Recovered/Resolved]
  - Oxygen saturation decreased [Recovered/Resolved]
  - Withdrawal syndrome [Recovering/Resolving]
  - Tardive dyskinesia [Recovering/Resolving]
